FAERS Safety Report 9672235 (Version 2)
Quarter: 2014Q1

REPORT INFORMATION
  Report Type: Spontaneous
  Country: IT (occurrence: None)
  Receive Date: 20131105
  Receipt Date: 20140130
  Transmission Date: 20141002
  Serious: Yes (Death, Life-Threatening)
  Sender: FDA-Public Use
  Company Number: FK201304831

PATIENT
  Age: 38 Year
  Sex: Female
  Weight: 70 kg

DRUGS (7)
  1. PROPOFOL (MANUFACTURER UNKNOWN) (PROPOFOL) (PROPOFOL) [Suspect]
     Indication: ABORTION INDUCED
     Dosage: 1 IN 1 TOTAL
     Route: 042
     Dates: start: 20131003, end: 20131003
  2. FENTANYL (FENTANYL) (FENTANYL) [Suspect]
     Indication: ABORTION INDUCED
     Dosage: 1 IN 1 TOTAL
     Route: 042
     Dates: start: 20131003, end: 20131003
  3. CERVIDIL [Suspect]
     Indication: ABORTION INDUCED
     Route: 067
     Dates: start: 20131003, end: 20131003
  4. PLASIL [Suspect]
     Indication: NAUSEA
     Route: 042
     Dates: start: 20131003, end: 20131003
  5. ZANTAC [Suspect]
     Indication: NAUSEA
     Route: 042
     Dates: start: 20131003, end: 20131003
  6. TORADOL [Suspect]
     Indication: ABDOMINAL PAIN
     Route: 042
     Dates: start: 20131003, end: 20131003
  7. PARACETAMOL (PARACETAMOL) [Concomitant]
     Indication: PAIN

REACTIONS (3)
  - Cardio-respiratory arrest [None]
  - Ventricular arrhythmia [None]
  - Exposure during pregnancy [None]
